FAERS Safety Report 18766221 (Version 2)
Quarter: 2021Q1

REPORT INFORMATION
  Report Type: Spontaneous
  Country: DE (occurrence: DE)
  Receive Date: 20210120
  Receipt Date: 20210201
  Transmission Date: 20210419
  Serious: Yes (Other)
  Sender: FDA-Public Use
  Company Number: DE-BRISTOL-MYERS SQUIBB COMPANY-BMS-2020-106314

PATIENT
  Age: 63 Year
  Sex: Male
  Weight: 110 kg

DRUGS (4)
  1. ELIQUIS [Suspect]
     Active Substance: APIXABAN
     Indication: AXILLARY VEIN THROMBOSIS
  2. OPDIVO [Suspect]
     Active Substance: NIVOLUMAB
     Indication: SQUAMOUS CELL CARCINOMA OF HEAD AND NECK
     Dosage: 240 MILLIGRAM
     Route: 065
     Dates: start: 20190821, end: 20201208
  3. ELIQUIS [Suspect]
     Active Substance: APIXABAN
     Indication: SUBCLAVIAN VEIN THROMBOSIS
     Dosage: 5 MILLIGRAM, BID
     Route: 065
  4. L?THYROXIN [LEVOTHYROXINE] [Concomitant]
     Active Substance: LEVOTHYROXINE SODIUM
     Indication: PRODUCT USED FOR UNKNOWN INDICATION
     Dosage: 100 UNITS NOT SPECIFIED ONCE DAILY
     Route: 065

REACTIONS (1)
  - Autoimmune haemolytic anaemia [Unknown]
